FAERS Safety Report 16017343 (Version 1)
Quarter: 2019Q1

REPORT INFORMATION
  Report Type: Spontaneous
  Country: US (occurrence: US)
  Receive Date: 20190228
  Receipt Date: 20190228
  Transmission Date: 20190418
  Serious: No
  Sender: FDA-Public Use
  Company Number: US-BAYER-2019-041725

PATIENT

DRUGS (11)
  1. VALTREX [Concomitant]
     Active Substance: VALACYCLOVIR HYDROCHLORIDE
  2. PREDNISONE. [Concomitant]
     Active Substance: PREDNISONE
  3. METHYLPREDNISOLONE. [Concomitant]
     Active Substance: METHYLPREDNISOLONE
  4. ALEVE [Suspect]
     Active Substance: NAPROXEN SODIUM
     Dosage: UNK
  5. PALBOCICLIB [Concomitant]
     Active Substance: PALBOCICLIB
  6. TEMOZOLOMIDE. [Concomitant]
     Active Substance: TEMOZOLOMIDE
  7. ALFUZOSIN [Concomitant]
     Active Substance: ALFUZOSIN
  8. CARBAMAZEPINE. [Concomitant]
     Active Substance: CARBAMAZEPINE
  9. HYDROCODONE [Concomitant]
     Active Substance: HYDROCODONE
  10. TYLENOL [Concomitant]
     Active Substance: ACETAMINOPHEN
  11. TEMODAR [Concomitant]
     Active Substance: TEMOZOLOMIDE

REACTIONS (1)
  - Drug effect incomplete [None]
